FAERS Safety Report 8433074-1 (Version None)
Quarter: 2012Q2

REPORT INFORMATION
  Report Type: 
  Country: None (occurrence: None)
  Receive Date: 20120613
  Receipt Date: 20120612
  Transmission Date: 20120825
  Serious: Yes (Death)
  Sender: FDA-Public Use
  Company Number: AR-ROCHE-1077591

PATIENT
  Sex: Female

DRUGS (3)
  1. MITOXANTRONE [Concomitant]
  2. MABTHERA [Suspect]
     Indication: NON-HODGKIN'S LYMPHOMA
     Route: 042
     Dates: start: 20120224
  3. FLUDARABINE PHOSPHATE [Concomitant]

REACTIONS (1)
  - FEBRILE NEUTROPENIA [None]
